FAERS Safety Report 23777628 (Version 1)
Quarter: 2024Q2

REPORT INFORMATION
  Report Type: Spontaneous
  Country: GR (occurrence: GR)
  Receive Date: 20240424
  Receipt Date: 20240424
  Transmission Date: 20240716
  Serious: No
  Sender: FDA-Public Use
  Company Number: GR-PFIZER INC-PV202400030192

PATIENT
  Age: 4 Year
  Sex: Male
  Weight: 16.5 kg

DRUGS (1)
  1. NGENLA [Suspect]
     Active Substance: SOMATROGON-GHLA
     Indication: Growth hormone deficiency
     Dosage: 11 MG, WEEKLY (EVERY SUNDAY)
     Route: 058
     Dates: start: 20240301

REACTIONS (1)
  - Injection site pain [Unknown]
